FAERS Safety Report 6022376-4 (Version None)
Quarter: 2008Q4

REPORT INFORMATION
  Report Type: 
  Country: None (occurrence: None)
  Receive Date: 20081221
  Receipt Date: 20081221
  Transmission Date: 20090506
  Serious: Yes (Death, Other)
  Sender: FDA-Public Use
  Company Number: None

PATIENT
  Age: 77 Year
  Sex: Male
  Weight: 82.5547 kg

DRUGS (1)
  1. OPANA [Suspect]
     Indication: BONE PAIN
     Dosage: 1 PILL TWICE DAILY

REACTIONS (3)
  - COMPLETED SUICIDE [None]
  - GUN SHOT WOUND [None]
  - MENTAL IMPAIRMENT [None]
